FAERS Safety Report 8177691-5 (Version None)
Quarter: 2012Q1

REPORT INFORMATION
  Report Type: 
  Country: None (occurrence: None)
  Receive Date: 20120301
  Receipt Date: 20120216
  Transmission Date: 20120608
  Serious: Yes (Hospitalization, Other)
  Sender: FDA-Public Use
  Company Number: CA-MYLANLABS-2012S1003604

PATIENT
  Age: 65 Year
  Sex: Female

DRUGS (4)
  1. PHENYTOIN [Interacting]
     Dosage: 200MG DAILY (AT BEDTIME)
     Route: 065
  2. SEPTRA DS [Interacting]
     Indication: URINARY TRACT INFECTION
     Dosage: SULFAMETHOXAZOLE 800MG/TRIMETHOPRIM 160MG TWICE DAILY FOR FOUR 7-DAY COURSES
     Route: 065
  3. PHENYTOIN [Interacting]
     Dosage: 450 MG DAILY
     Route: 065
  4. PHENYTOIN [Suspect]
     Dosage: 300MG DAILY
     Route: 065

REACTIONS (8)
  - DYSPHAGIA [None]
  - INCONTINENCE [None]
  - DRUG INTERACTION [None]
  - SOMNOLENCE [None]
  - ENCEPHALOPATHY [None]
  - APHASIA [None]
  - MUSCLE SPASTICITY [None]
  - APRAXIA [None]
